FAERS Safety Report 24309495 (Version 3)
Quarter: 2024Q4

REPORT INFORMATION
  Report Type: Report from Study
  Country: GB (occurrence: GB)
  Receive Date: 20240911
  Receipt Date: 20241013
  Transmission Date: 20250115
  Serious: Yes (Hospitalization, Other)
  Sender: ABBVIE
  Company Number: GB-ABBVIE-5913740

PATIENT
  Sex: Male

DRUGS (6)
  1. CARBIDOPA\LEVODOPA [Suspect]
     Active Substance: CARBIDOPA\LEVODOPA
     Indication: Parkinson^s disease
     Dosage: 20MG/5MG, MD: 7.1, CR: 1.5, ED: 1.3
     Route: 050
  2. CARBIDOPA\LEVODOPA [Suspect]
     Active Substance: CARBIDOPA\LEVODOPA
  3. BENSERAZIDE HYDROCHLORIDE\LEVODOPA [Concomitant]
     Active Substance: BENSERAZIDE HYDROCHLORIDE\LEVODOPA
     Indication: Product used for unknown indication
     Dosage: 25/100, CR
  4. AMANTADINE [Concomitant]
     Active Substance: AMANTADINE
     Indication: Product used for unknown indication
     Dosage: FREQUENCY TEXT: AT 08.00
  5. AMANTADINE [Concomitant]
     Active Substance: AMANTADINE
     Indication: Product used for unknown indication
     Dosage: FREQUENCY TEXT: AT 08.00
  6. CLOZAPINE [Concomitant]
     Active Substance: CLOZAPINE
     Indication: Product used for unknown indication
     Dosage: 12.5MGS

REACTIONS (19)
  - Bedridden [Unknown]
  - Tremor [Unknown]
  - Respiratory tract infection [Unknown]
  - Weight decreased [Unknown]
  - Constipation [Recovered/Resolved]
  - Abdominal pain [Unknown]
  - Muscle rigidity [Unknown]
  - Depressed mood [Unknown]
  - Speech disorder [Unknown]
  - Pain [Unknown]
  - Drooling [Unknown]
  - Hypophagia [Unknown]
  - Stoma site erythema [Unknown]
  - Stoma site infection [Unknown]
  - Mobility decreased [Unknown]
  - Poor quality sleep [Unknown]
  - Muscle spasms [Unknown]
  - Hospitalisation [Unknown]
  - Stoma site pain [Unknown]
